FAERS Safety Report 12410952 (Version 2)
Quarter: 2016Q2

REPORT INFORMATION
  Report Type: Spontaneous
  Country: IT (occurrence: IT)
  Receive Date: 20160527
  Receipt Date: 20160614
  Transmission Date: 20160815
  Serious: Yes (Other)
  Sender: FDA-Public Use
  Company Number: IT-ROCHE-1765126

PATIENT
  Age: 61 Year
  Sex: Male
  Weight: 74 kg

DRUGS (5)
  1. PEPTAZOL (ITALY) [Concomitant]
     Indication: GASTROOESOPHAGEAL REFLUX DISEASE
     Dosage: PERIOD: 15 MONTHS
     Route: 048
  2. FOLIFILL [Concomitant]
     Indication: ANAEMIA
     Dosage: PERIOD: 2 YEARS
     Route: 048
  3. ESBRIET [Suspect]
     Active Substance: PIRFENIDONE
     Indication: IDIOPATHIC PULMONARY FIBROSIS
     Route: 048
     Dates: start: 20140810, end: 20160502
  4. NOREMIFA [Concomitant]
     Active Substance: DIMETHICONE\MAGNESIUM ALGINATE\SODIUM ALGINATE
     Indication: GASTROOESOPHAGEAL REFLUX DISEASE
     Dosage: SYRUP CONTAINING MAGNESIUM ALGINATE AND SIMETHICON
     Route: 048
  5. SIMVASTATIN. [Concomitant]
     Active Substance: SIMVASTATIN
     Indication: HYPERCHOLESTEROLAEMIA
     Dosage: PERIOD: 3 YEARS
     Route: 065

REACTIONS (1)
  - Gamma-glutamyltransferase increased [Not Recovered/Not Resolved]

NARRATIVE: CASE EVENT DATE: 20160502
